FAERS Safety Report 24307987 (Version 2)
Quarter: 2025Q2

REPORT INFORMATION
  Report Type: Report from Study
  Country: US (occurrence: US)
  Receive Date: 20240911
  Receipt Date: 20250429
  Transmission Date: 20250717
  Serious: No
  Sender: SUNOVION
  Company Number: US-SUMITOMO PHARMA SWITZERLAND GMBH-2024SPA001391

PATIENT

DRUGS (1)
  1. ORGOVYX [Suspect]
     Active Substance: RELUGOLIX
     Indication: Prostate cancer
     Dosage: 120 MG, SINGLE
     Route: 048
     Dates: start: 20231027

REACTIONS (3)
  - Anxiety [Unknown]
  - Hot flush [Unknown]
  - Musculoskeletal stiffness [Unknown]
